FAERS Safety Report 24669044 (Version 1)
Quarter: 2024Q4

REPORT INFORMATION
  Report Type: Other
  Country: CN (occurrence: CN)
  Receive Date: 20241127
  Receipt Date: 20241127
  Transmission Date: 20250115
  Serious: Yes (Hospitalization, Other)
  Sender: ANI
  Company Number: CN-ANIPHARMA-012937

PATIENT
  Age: 58 Year
  Sex: Male

DRUGS (6)
  1. MORPHINE [Suspect]
     Active Substance: MORPHINE
     Indication: Pain management
     Dosage: SUSTAINED RELEASE TABLET
  2. PACLITAXEL [Concomitant]
     Active Substance: PACLITAXEL
     Indication: Chemotherapy
     Dosage: FIRST CYCLE
  3. GIMERACIL\OTERACIL\TEGAFUR [Concomitant]
     Active Substance: GIMERACIL\OTERACIL POTASSIUM\TEGAFUR
     Indication: Chemotherapy
     Dosage: 60 MG IN THE MORNING AND 40 MG IN THE EVENING
  4. IBANDRONIC ACID [Concomitant]
     Active Substance: IBANDRONIC ACID
     Indication: Metastases to bone
  5. ETHAMBUTOL\ISONIAZID\PYRAZINAMIDE\RIFAMYCIN [Concomitant]
     Active Substance: ETHAMBUTOL\ISONIAZID\PYRAZINAMIDE\RIFAMYCIN
     Indication: Tuberculosis
     Dosage: 275MG/75MG/400MG/150MG
  6. GIMERACIL\OTERACIL\TEGAFUR [Concomitant]
     Active Substance: GIMERACIL\OTERACIL POTASSIUM\TEGAFUR
     Indication: Chemotherapy

REACTIONS (2)
  - Drug interaction [Unknown]
  - Intestinal obstruction [Recovered/Resolved]
